FAERS Safety Report 9752519 (Version 18)
Quarter: 2017Q2

REPORT INFORMATION
  Report Type: Report from Study
  Country: US (occurrence: US)
  Receive Date: 20131213
  Receipt Date: 20170602
  Transmission Date: 20170830
  Serious: Yes (Other)
  Sender: FDA-Public Use
  Company Number: US-SA-2013SA127026

PATIENT
  Age: 51 Year
  Sex: Female

DRUGS (10)
  1. VITAMIN D [Concomitant]
     Active Substance: CHOLECALCIFEROL
  2. VITAMIN B12 [Concomitant]
     Active Substance: CYANOCOBALAMIN
  3. PROZAC [Concomitant]
     Active Substance: FLUOXETINE HYDROCHLORIDE
     Indication: FATIGUE
     Dosage: DOSE: 20 MG (MOOD SWINGS)
  4. AUBAGIO [Suspect]
     Active Substance: TERIFLUNOMIDE
     Indication: MULTIPLE SCLEROSIS
     Route: 048
     Dates: start: 20131004
  5. PROZAC [Concomitant]
     Active Substance: FLUOXETINE HYDROCHLORIDE
     Indication: MOOD SWINGS
     Dosage: DOSE: 20 MG (MOOD SWINGS)
  6. FLECAINIDE [Concomitant]
     Active Substance: FLECAINIDE
     Indication: ATRIAL FIBRILLATION
  7. SIMVASTATIN. [Concomitant]
     Active Substance: SIMVASTATIN
     Dosage: STRENGTH: 40 MG
  8. ELIQUIS [Concomitant]
     Active Substance: APIXABAN
  9. AUBAGIO [Suspect]
     Active Substance: TERIFLUNOMIDE
     Indication: MULTIPLE SCLEROSIS
     Route: 048
     Dates: start: 20131020
  10. TECFIDERA [Suspect]
     Active Substance: DIMETHYL FUMARATE
     Indication: PRODUCT USED FOR UNKNOWN INDICATION
     Route: 065
     Dates: start: 20130619, end: 20130826

REACTIONS (61)
  - Kidney infection [Unknown]
  - Sleep disorder [Not Recovered/Not Resolved]
  - Hypoaesthesia [Unknown]
  - Skin burning sensation [Unknown]
  - Sleep apnoea syndrome [Unknown]
  - Back pain [Unknown]
  - Abdominal pain upper [Unknown]
  - Tremor [Unknown]
  - Chromaturia [Recovered/Resolved]
  - Constipation [Unknown]
  - Asthenia [Unknown]
  - Muscle tightness [Not Recovered/Not Resolved]
  - Chest pain [Recovered/Resolved]
  - Asthenia [Recovering/Resolving]
  - Pruritus [Recovering/Resolving]
  - Hair texture abnormal [Unknown]
  - Urticaria [Unknown]
  - Micturition urgency [Unknown]
  - Pain [Unknown]
  - Band sensation [Unknown]
  - Malaise [Unknown]
  - Joint crepitation [Unknown]
  - Muscle twitching [Not Recovered/Not Resolved]
  - Dyskinesia [Unknown]
  - JC virus test positive [Not Recovered/Not Resolved]
  - Tachycardia [Recovered/Resolved]
  - Urine odour abnormal [Unknown]
  - Skin disorder [Unknown]
  - Hair colour changes [Unknown]
  - Fall [Recovered/Resolved]
  - Arthralgia [Not Recovered/Not Resolved]
  - Unevaluable event [Unknown]
  - Dysstasia [Unknown]
  - Paraesthesia [Unknown]
  - Alopecia [Unknown]
  - Overdose [Unknown]
  - Walking aid user [Not Recovered/Not Resolved]
  - Haematuria [Unknown]
  - Dry skin [Unknown]
  - Dyspnoea [Unknown]
  - Drug dose omission [Unknown]
  - Arthropathy [Unknown]
  - Urticaria [Unknown]
  - Muscular weakness [Unknown]
  - Depressed mood [Not Recovered/Not Resolved]
  - Muscle strain [Unknown]
  - Gait disturbance [Unknown]
  - Rash [Unknown]
  - Hypokinesia [Unknown]
  - Lymphoedema [Not Recovered/Not Resolved]
  - Musculoskeletal discomfort [Recovering/Resolving]
  - Rash [Recovering/Resolving]
  - Meniscus injury [Unknown]
  - Sinusitis [Unknown]
  - Cerebrovascular accident [Unknown]
  - Multiple sclerosis relapse [Not Recovered/Not Resolved]
  - Hot flush [Recovered/Resolved]
  - Back pain [Unknown]
  - Alopecia [Not Recovered/Not Resolved]
  - Hepatic enzyme increased [Recovered/Resolved]
  - Contusion [Unknown]

NARRATIVE: CASE EVENT DATE: 2013
